FAERS Safety Report 9484981 (Version 1)
Quarter: 2013Q3

REPORT INFORMATION
  Report Type: Spontaneous
  Country: GB (occurrence: GB)
  Receive Date: 20130828
  Receipt Date: 20130828
  Transmission Date: 20140515
  Serious: Yes (Hospitalization, Other)
  Sender: FDA-Public Use
  Company Number: GB-B.I. PHARMACEUTICALS,INC./RIDGEFIELD-2013-UK-01723UK

PATIENT
  Age: 72 Year
  Sex: Male
  Weight: 60.4 kg

DRUGS (14)
  1. PRADAXA [Suspect]
     Dosage: 220 MG
     Route: 048
     Dates: start: 20130725, end: 20130808
  2. ALENDRONIC ACID [Concomitant]
     Dosage: 10 MG
  3. AMIODARONE [Concomitant]
     Dosage: 200 MG
  4. ASPIRIN [Concomitant]
     Dosage: 75 MG
  5. BISOPROLOL [Concomitant]
     Dosage: 3.75 MG
  6. CALCICHEW D3 [Concomitant]
     Dosage: 1 DF
  7. DIHYDROCODEINE [Concomitant]
     Dosage: 60 MG
  8. FUROSEMIDE [Concomitant]
     Dosage: 40 MG
  9. IBUPROFEN [Concomitant]
     Dosage: 0.5%, 1DF
  10. LANSOPRAZOLE [Concomitant]
     Dosage: 30 MG
  11. NICOTINE [Concomitant]
     Dosage: 14 MG
     Route: 062
  12. PARACETAMOL [Concomitant]
     Dosage: 4 G
  13. PREDNISOLONE [Concomitant]
     Dosage: 6 MG
  14. RAMIPRIL [Concomitant]
     Dosage: 2.5 MG

REACTIONS (1)
  - Rectal haemorrhage [Not Recovered/Not Resolved]
